FAERS Safety Report 4991121-3 (Version None)
Quarter: 2006Q2

REPORT INFORMATION
  Report Type: 
  Country: None (occurrence: None)
  Receive Date: 20060428
  Receipt Date: 20060410
  Transmission Date: 20061013
  Serious: No
  Sender: FDA-Public Use
  Company Number: DE200604003461

PATIENT
  Sex: Male

DRUGS (4)
  1. ZYPREXA [Suspect]
     Indication: SCHIZOAFFECTIVE DISORDER
     Dosage: 10 MG, DAILY (1/D),
     Dates: start: 20060321
  2. VALPROATE SODIUM [Concomitant]
  3. QUETIAPINE FUMARATE [Concomitant]
  4. MINOCYCLINE HCL [Concomitant]

REACTIONS (3)
  - LEUKOPENIA [None]
  - NEUTROPENIA [None]
  - TRANSAMINASES INCREASED [None]
